FAERS Safety Report 9773476 (Version 2)
Quarter: 2014Q1

REPORT INFORMATION
  Report Type: Spontaneous
  Country: US (occurrence: US)
  Receive Date: 20131219
  Receipt Date: 20140228
  Transmission Date: 20141002
  Serious: Yes (Other)
  Sender: FDA-Public Use
  Company Number: US-TARO-2013P1022029

PATIENT
  Age: 74 Year
  Sex: Male
  Weight: 104.33 kg

DRUGS (17)
  1. PHENYTOIN SODIUM EXTENDED CAPSULES USP 100MG [Suspect]
     Route: 048
     Dates: end: 2012
  2. PHENYTOIN SODIUM EXTENDED CAPSULES USP 100MG [Suspect]
     Route: 048
     Dates: start: 2012
  3. OTC ALLERGY PILL (UNSPECIFIED) [Concomitant]
  4. METFORMIN [Concomitant]
     Route: 048
  5. HYDROCORT [Concomitant]
  6. ATORVASTATIN [Concomitant]
     Route: 048
  7. TRICOR [Concomitant]
     Route: 048
  8. ASPIRIN [Concomitant]
     Route: 048
  9. MUCINEX [Concomitant]
  10. MULTIVITAMIN [Concomitant]
  11. VITAMIN D [Concomitant]
     Route: 048
  12. FEXOFENADINE [Concomitant]
     Route: 048
  13. RESVERATROL [Concomitant]
  14. PAIN MEDICATION (UNSPECIFIED) [Concomitant]
  15. HYDROCODONE-ACETAMINOPHEN [Concomitant]
  16. TAMSULOSIN [Concomitant]
     Route: 048
  17. HYDROCHLOROTHIAZIDE [Concomitant]
     Route: 048

REACTIONS (10)
  - Convulsion [Recovered/Resolved]
  - Pain [Unknown]
  - Drug ineffective [Unknown]
  - Product quality issue [Unknown]
  - Craniocerebral injury [Recovering/Resolving]
  - Fall [Recovered/Resolved]
  - Excoriation [Recovering/Resolving]
  - Erythema [Recovering/Resolving]
  - Swelling [Recovering/Resolving]
  - Ocular hyperaemia [Recovering/Resolving]
